FAERS Safety Report 8839726 (Version 1)
Quarter: 2012Q4

REPORT INFORMATION
  Report Type: Spontaneous
  Country: DE (occurrence: None)
  Receive Date: 20121011
  Receipt Date: 20121011
  Transmission Date: 20130627
  Serious: Yes (Hospitalization, Other)
  Sender: FDA-Public Use
  Company Number: EU-2012-10171

PATIENT
  Age: 72 Year
  Sex: Male
  Weight: 80 kg

DRUGS (28)
  1. SAMSCA (TOLVAPTAN) TABLET [Suspect]
     Indication: HYPONATRAEMIA
     Dosage: 7.5 Mg milligram(s), daily dose, Oral
     Route: 048
     Dates: start: 20120103, end: 20120104
  2. SAMSCA (TOLVAPTAN) TABLET [Suspect]
     Indication: HYPONATRAEMIA
     Dosage: 7.5 Mg milligram(s), daily dose, Oral
     Route: 048
     Dates: start: 20120109, end: 20120113
  3. SAMSCA (TOLVAPTAN) TABLET [Suspect]
     Indication: HYPONATRAEMIA
     Dosage: 15 Mg milligram(s), daily dose, Oral
     Route: 048
     Dates: start: 20120114, end: 20120114
  4. SAMSCA (TOLVAPTAN) TABLET [Suspect]
     Indication: HYPONATRAEMIA
     Dosage: 30 Mg milligram(s), daily dose
     Dates: start: 20120115, end: 20120120
  5. SAMSCA (TOLVAPTAN) TABLET [Suspect]
     Indication: HYPONATRAEMIA
     Dosage: 15 Mg milligram(s), daily dose, Oral
     Route: 048
     Dates: start: 20120131, end: 20120201
  6. SAMSCA (TOLVAPTAN) TABLET [Suspect]
     Indication: HYPONATRAEMIA
     Dosage: 15 Mg milligram(s), daily dose
     Dates: start: 20120226, end: 20120226
  7. SAMSCA (TOLVAPTAN) TABLET [Suspect]
     Indication: HYPONATRAEMIA
     Dosage: 15 Mg milligram(s), daily dose
     Dates: start: 20120315, end: 20120315
  8. SAMSCA (TOLVAPTAN) TABLET [Suspect]
     Indication: HYPONATRAEMIA
     Dosage: 7.5 Mg milligram(s), daily dose
     Dates: start: 20120317, end: 20120319
  9. SAMSCA (TOLVAPTAN) TABLET [Suspect]
     Indication: HYPONATRAEMIA
     Dosage: 15 Mg milligram(s), daily dose
     Dates: start: 20120423, end: 20120423
  10. SAMSCA (TOLVAPTAN) TABLET [Suspect]
     Indication: HYPONATRAEMIA
     Dosage: 15 Mg milligram(s), daily dose
     Dates: start: 20120425, end: 20120427
  11. SAMSCA (TOLVAPTAN) TABLET [Suspect]
     Indication: HYPONATRAEMIA
     Dosage: 7.5 Mg milligram(s), daily dose
     Dates: start: 20120521, end: 20120522
  12. SAMSCA (TOLVAPTAN) TABLET [Suspect]
     Indication: HYPONATRAEMIA
     Dosage: 15 Mg milligram(s), daily dose
     Dates: start: 20120604
  13. SALINE (SALINE) [Concomitant]
  14. METFORMIN (METFORMIN) [Concomitant]
  15. GLIMEPIRID [Concomitant]
  16. BISOPROLOL [Concomitant]
  17. AMLODIPIN [Concomitant]
  18. RAMIPRIL [Concomitant]
  19. ALLOPURINOL [Concomitant]
  20. MOXONIDINE [Concomitant]
  21. HYDROCHLORTHIAZID (HYDROCHLOROTHIAZIDE) [Concomitant]
  22. GENTAMYCIN (GENTAMYCIN) [Concomitant]
  23. OCTENISEPT (OCTENIDINE HYDROCHLORIDE, PHENOXYETHANOL) [Concomitant]
  24. CARBOPLATIN (CARBOPLATIN) [Concomitant]
  25. ETOPOSID (ETOPOSIDE) [Concomitant]
  26. DEXAMETHASON (DEXAMETHASONE) [Concomitant]
  27. MORPHINE (MORPHINE) [Concomitant]
  28. RANITIDINE (RANITIDINE) [Concomitant]

REACTIONS (10)
  - Atelectasis [None]
  - General physical health deterioration [None]
  - Cough [None]
  - Tumour pain [None]
  - Hypertension [None]
  - Rapid correction of hyponatraemia [None]
  - Pyrexia [None]
  - Blood creatine phosphokinase MB increased [None]
  - Wrong technique in drug usage process [None]
  - Aplasia [None]
